FAERS Safety Report 7730053-4 (Version None)
Quarter: 2011Q3

REPORT INFORMATION
  Report Type: 
  Country: None (occurrence: None)
  Receive Date: 20110906
  Receipt Date: 20110829
  Transmission Date: 20111222
  Serious: Yes (Death, Hospitalization)
  Sender: FDA-Public Use
  Company Number: SE-ROCHE-799464

PATIENT
  Sex: Male
  Weight: 86 kg

DRUGS (9)
  1. ONDANSETRON [Concomitant]
     Dates: start: 20100604
  2. VINCRISTINE [Concomitant]
     Dosage: OFF STUDY TREATMENT
  3. BEVACIZUMAB [Suspect]
     Dosage: OFF STUDY TREATMENT
     Route: 065
  4. CARBAMAZEPINE [Concomitant]
     Dates: start: 20100520
  5. BLINDED BEVACIZUMAB [Suspect]
     Indication: GLIOBLASTOMA
     Dosage: DATE OF LAST DOSE PRIOR TO SAE: 22 DECEMBER 2010, FORM: INFUSION,
     Route: 042
     Dates: start: 20100507, end: 20101222
  6. CILAXORAL [Concomitant]
     Dosage: TDD: PER NEEDED
     Dates: start: 20100604
  7. PROCARBAZINE HYDROCHLORIDE [Concomitant]
     Dosage: OFF STUDY TREATMENT
  8. TEMOZOLOMIDE [Suspect]
     Indication: GLIOBLASTOMA
     Dosage: LAST DOSE PRIOR TO SAE: 13 DEC 2010, DOSE: 75-150 MG/M2, FREQ: SCHEDULED
     Route: 048
     Dates: start: 20100705, end: 20101222
  9. LOMUSTINE [Concomitant]
     Dosage: OFF STUDY TREATMENT

REACTIONS (2)
  - PULMONARY EMBOLISM [None]
  - DEEP VEIN THROMBOSIS [None]
